FAERS Safety Report 26212453 (Version 1)
Quarter: 2025Q4

REPORT INFORMATION
  Report Type: Spontaneous
  Country: US (occurrence: US)
  Receive Date: 20251230
  Receipt Date: 20251230
  Transmission Date: 20260118
  Serious: No
  Sender: KARYOPHARM THERAPEUTICS
  Company Number: US-KARYOPHARM-2025KPT101106

PATIENT

DRUGS (9)
  1. SELINEXOR [Suspect]
     Active Substance: SELINEXOR
     Indication: Plasma cell myeloma
     Dosage: 60 MG WEEKLY
     Route: 048
     Dates: start: 20250730
  2. TERAZOSIN [Concomitant]
     Active Substance: TERAZOSIN HYDROCHLORIDE
  3. ALLOPURINOL [Concomitant]
     Active Substance: ALLOPURINOL
  4. CARVEDILOL [Concomitant]
     Active Substance: CARVEDILOL
  5. HYDRALAZINE [Concomitant]
     Active Substance: HYDRALAZINE HYDROCHLORIDE
  6. NIFEDIPINE [Concomitant]
     Active Substance: NIFEDIPINE
  7. ONDANSETRON [Concomitant]
     Active Substance: ONDANSETRON
  8. ROSUVASTATIN [Concomitant]
     Active Substance: ROSUVASTATIN
  9. ASPIRIN [Concomitant]
     Active Substance: ASPIRIN

REACTIONS (1)
  - Heart valve incompetence [Unknown]

NARRATIVE: CASE EVENT DATE: 20250101
